FAERS Safety Report 8515022-9 (Version None)
Quarter: 2012Q3

REPORT INFORMATION
  Report Type: 
  Country: None (occurrence: None)
  Receive Date: 20120705
  Receipt Date: 20120621
  Transmission Date: 20120928
  Serious: Yes (Hospitalization)
  Sender: FDA-Public Use
  Company Number: 2012AP001919

PATIENT
  Age: 79 Year
  Sex: Male

DRUGS (18)
  1. LISINOPRIL [Suspect]
     Indication: PRODUCT USED FOR UNKNOWN INDICATION
     Dosage: 20 MG
  2. LANTUS [Concomitant]
  3. LACTULOSE [Concomitant]
  4. GEMFIBROZIL [Suspect]
     Indication: PRODUCT USED FOR UNKNOWN INDICATION
     Dosage: 600 MG;BID
  5. HYDRALAZINE HCL [Concomitant]
  6. METOPROLOL SUCCINATE [Concomitant]
  7. FINASTERIDE [Suspect]
     Indication: PRODUCT USED FOR UNKNOWN INDICATION
     Dosage: 5 MG
  8. LEVOTHYROXINE SODIUM [Concomitant]
  9. FERROUS SULFATE TAB [Concomitant]
  10. ASPIRIN [Suspect]
  11. SODIUM POLYSTYRENE SULFONATE [Concomitant]
  12. TRAVOPROST [Concomitant]
  13. AMLODIPINE BESYLATE [Suspect]
     Indication: PRODUCT USED FOR UNKNOWN INDICATION
     Dosage: 10 MG
  14. DOXAZOSIN MESYLATE [Suspect]
     Indication: PRODUCT USED FOR UNKNOWN INDICATION
     Dosage: 8 MG
  15. SIMVASTATIN [Suspect]
     Indication: PRODUCT USED FOR UNKNOWN INDICATION
     Dosage: 20 MG;QD ; 40 MG;QD
  16. SIMVASTATIN [Suspect]
     Indication: PRODUCT USED FOR UNKNOWN INDICATION
     Dosage: 20 MG;QD ; 40 MG;QD
  17. FUROSEMIDE [Concomitant]
  18. ERGOCALCIFEROL [Concomitant]

REACTIONS (13)
  - BLOOD PRESSURE SYSTOLIC INCREASED [None]
  - RHABDOMYOLYSIS [None]
  - PARAESTHESIA [None]
  - MYOPATHY TOXIC [None]
  - IRON DEFICIENCY ANAEMIA [None]
  - EROSIVE DUODENITIS [None]
  - ABDOMINAL DISTENSION [None]
  - ANXIETY [None]
  - DRUG INTERACTION [None]
  - RESPIRATORY RATE INCREASED [None]
  - HYPOREFLEXIA [None]
  - TEARFULNESS [None]
  - GAIT DISTURBANCE [None]
